FAERS Safety Report 24929779 (Version 2)
Quarter: 2025Q1

REPORT INFORMATION
  Report Type: Spontaneous
  Country: US (occurrence: US)
  Receive Date: 20250205
  Receipt Date: 20250310
  Transmission Date: 20250409
  Serious: No
  Sender: SANOFI AVENTIS
  Company Number: US-SA-2025SA033390

PATIENT
  Age: 11 Year
  Sex: Female
  Weight: 83 kg

DRUGS (2)
  1. DUPIXENT [Suspect]
     Active Substance: DUPILUMAB
     Indication: Eczema
     Route: 058
     Dates: start: 202412, end: 202412
  2. DUPIXENT [Suspect]
     Active Substance: DUPILUMAB
     Indication: Dermatitis atopic
     Dosage: 200 MG, QOW
     Route: 058
     Dates: start: 202412

REACTIONS (4)
  - Sleep disorder [Unknown]
  - Pyrexia [Unknown]
  - Viral infection [Unknown]
  - Alopecia areata [Unknown]

NARRATIVE: CASE EVENT DATE: 20250101
